FAERS Safety Report 5072072-5 (Version None)
Quarter: 2006Q3

REPORT INFORMATION
  Report Type: 
  Country: None (occurrence: None)
  Receive Date: 20060807
  Receipt Date: 20060627
  Transmission Date: 20061208
  Serious: Yes (Other)
  Sender: FDA-Public Use
  Company Number: US-BAYER-200612729BCC

PATIENT
  Age: 74 Year
  Sex: Male
  Weight: 88 kg

DRUGS (4)
  1. PHILLIPS MILK OF MAGNESIA CLASSIC MINT [Suspect]
     Indication: FLATULENCE
     Dosage: TOTAL DAILY DOSE: 2.5 ML  UNIT DOSE: 30 ML
     Route: 048
     Dates: start: 20060626
  2. COUMADIN [Suspect]
  3. TOPROL-XL [Concomitant]
  4. LIPITOR [Concomitant]

REACTIONS (3)
  - FAECES DISCOLOURED [None]
  - HAEMORRHAGE [None]
  - ULCER [None]
